FAERS Safety Report 5384075-1 (Version None)
Quarter: 2007Q3

REPORT INFORMATION
  Report Type: 
  Country: None (occurrence: None)
  Receive Date: 20070709
  Receipt Date: 20070419
  Transmission Date: 20080115
  Serious: Yes (Life-Threatening, Hospitalization)
  Sender: FDA-Public Use
  Company Number: US-2007-012342

PATIENT
  Age: 41 Year
  Sex: Female

DRUGS (4)
  1. ULTRAVIST 300 [Suspect]
     Indication: UROGRAM
     Dosage: 100 ML, 1 DOSE, INTRAVENOUS
     Route: 042
     Dates: start: 20070329, end: 20070329
  2. LABETALOL HCL [Concomitant]
  3. ENALAPRIL (ENALAPRIL) [Concomitant]
  4. LEVOTHYROXINE SODIUM [Concomitant]

REACTIONS (17)
  - ANAPHYLACTIC REACTION [None]
  - COLD SWEAT [None]
  - DEPRESSED LEVEL OF CONSCIOUSNESS [None]
  - DISORIENTATION [None]
  - DYSPNOEA [None]
  - FACE OEDEMA [None]
  - HOT FLUSH [None]
  - HYPOAESTHESIA [None]
  - HYPOAESTHESIA FACIAL [None]
  - HYPOTENSION [None]
  - LIP SWELLING [None]
  - OCULAR HYPERAEMIA [None]
  - OEDEMA PERIPHERAL [None]
  - PAIN [None]
  - PILOERECTION [None]
  - PULSE PRESSURE DECREASED [None]
  - TACHYCARDIA [None]
